FAERS Safety Report 16740466 (Version 3)
Quarter: 2019Q4

REPORT INFORMATION
  Report Type: Report from Study
  Country: US (occurrence: US)
  Receive Date: 20190826
  Receipt Date: 20191113
  Transmission Date: 20200122
  Serious: Yes (Hospitalization, Other)
  Sender: FDA-Public Use
  Company Number: US-JNJFOC-20190806807

PATIENT
  Age: 61 Year
  Sex: Male

DRUGS (22)
  1. IMBRUVICA [Suspect]
     Active Substance: IBRUTINIB
     Indication: CHRONIC LYMPHOCYTIC LEUKAEMIA
  2. VENETOCLAX. [Suspect]
     Active Substance: VENETOCLAX
     Indication: LYMPHOCYTIC LEUKAEMIA
     Route: 065
     Dates: start: 20190709
  3. BUPROPION. [Concomitant]
     Active Substance: BUPROPION
  4. FLOVENT [Concomitant]
     Active Substance: FLUTICASONE PROPIONATE
  5. IMBRUVICA [Suspect]
     Active Substance: IBRUTINIB
     Indication: NEOPLASM MALIGNANT
     Dosage: 420 MG, QD
     Route: 048
     Dates: start: 20181215
  6. ONDANSETRON [Concomitant]
     Active Substance: ONDANSETRON
  7. ALLOPURINOL. [Concomitant]
     Active Substance: ALLOPURINOL
  8. UMECLIDINIUM BROMIDE [Concomitant]
     Active Substance: UMECLIDINIUM BROMIDE
  9. AMITRIPTYLINE [Concomitant]
     Active Substance: AMITRIPTYLINE
  10. ASPIRIN                            /00002701/ [Concomitant]
     Active Substance: ASPIRIN
  11. SPIRONOLACTONE. [Concomitant]
     Active Substance: SPIRONOLACTONE
  12. VOLTAREN [Concomitant]
     Active Substance: DICLOFENAC SODIUM
  13. IMBRUVICA [Suspect]
     Active Substance: IBRUTINIB
     Indication: LYMPHOCYTIC LEUKAEMIA
     Dosage: 420 MG, QD
     Route: 048
     Dates: start: 20190306
  14. VENETOCLAX. [Suspect]
     Active Substance: VENETOCLAX
     Indication: NEOPLASM MALIGNANT
     Dosage: 100 MG, UNK
     Route: 065
     Dates: start: 20190723
  15. VENETOCLAX. [Suspect]
     Active Substance: VENETOCLAX
     Indication: CHRONIC LYMPHOCYTIC LEUKAEMIA
     Route: 048
     Dates: start: 20190810
  16. COMPAZINE                          /00013302/ [Concomitant]
     Active Substance: PROCHLORPERAZINE EDISYLATE
  17. ACYCLOVIR                          /00587301/ [Concomitant]
     Active Substance: ACYCLOVIR
  18. ALBUTEROL                          /00139501/ [Concomitant]
     Active Substance: ALBUTEROL
  19. ATORVASTATIN [Concomitant]
     Active Substance: ATORVASTATIN
  20. METOPROLOL. [Concomitant]
     Active Substance: METOPROLOL
  21. OMEPRAZOLE. [Concomitant]
     Active Substance: OMEPRAZOLE
  22. VITAMIN B [Concomitant]
     Active Substance: VITAMIN B

REACTIONS (11)
  - Kidney infection [Unknown]
  - Fluid retention [Recovering/Resolving]
  - Joint swelling [Not Recovered/Not Resolved]
  - Chronic kidney disease [Unknown]
  - Sepsis [Unknown]
  - Chills [Recovered/Resolved]
  - Urinary tract infection [Unknown]
  - Pyelonephritis [Unknown]
  - Pyrexia [Recovered/Resolved]
  - Renal failure [Not Recovered/Not Resolved]
  - Decreased activity [Not Recovered/Not Resolved]

NARRATIVE: CASE EVENT DATE: 201907
